FAERS Safety Report 7000433-3 (Version None)
Quarter: 2010Q3

REPORT INFORMATION
  Report Type: 
  Country: None (occurrence: None)
  Receive Date: 20100920
  Receipt Date: 20090916
  Transmission Date: 20110219
  Serious: No
  Sender: FDA-Public Use
  Company Number: US-ASTRAZENECA-2009SE13792

PATIENT
  Sex: Female
  Weight: 52.2 kg

DRUGS (10)
  1. SEROQUEL [Suspect]
     Indication: ANXIETY
     Dosage: TOTAL DAILY DOSE 425
     Route: 048
  2. SEROQUEL [Suspect]
     Route: 048
     Dates: end: 20090901
  3. SYNTHROID [Concomitant]
  4. CARVEDILOL [Concomitant]
  5. LIPITOR [Concomitant]
  6. ASPIRIN [Concomitant]
  7. VITAMINS [Concomitant]
  8. CALCIUM [Concomitant]
  9. ACTONEL [Concomitant]
  10. COLAZAL [Concomitant]

REACTIONS (4)
  - DIARRHOEA [None]
  - INCORRECT DOSE ADMINISTERED [None]
  - INSOMNIA [None]
  - PRURITUS [None]
